FAERS Safety Report 14615482 (Version 2)
Quarter: 2018Q2

REPORT INFORMATION
  Report Type: Report from Study
  Country: PL (occurrence: PL)
  Receive Date: 20180308
  Receipt Date: 20180409
  Transmission Date: 20180711
  Serious: Yes (Life-Threatening, Hospitalization, Disabling)
  Sender: FDA-Public Use
  Company Number: PL-AMGEN-POLCT2018032152

PATIENT
  Age: 60 Year
  Sex: Female
  Weight: 63 kg

DRUGS (17)
  1. TRAMAL [Concomitant]
     Active Substance: TRAMADOL
     Dosage: 100 MG, UNK
  2. SPIRONOL [Concomitant]
     Active Substance: SPIRONOLACTONE
     Dosage: 1 UNK, UNK
  3. VITAMIN D3 [Concomitant]
     Active Substance: CHOLECALCIFEROL
     Dosage: 1 UNK, UNK
  4. MILURIT [Concomitant]
     Active Substance: ALLOPURINOL
     Dosage: 1 UNK, UNK
  5. DALACIN [Concomitant]
     Active Substance: CLINDAMYCIN
     Dosage: 300 MG, UNK
     Dates: start: 20180205, end: 20180208
  6. KALIPOZ [Concomitant]
     Active Substance: POTASSIUM CHLORIDE
     Dosage: 1 UNK, UNK
  7. NACL [Concomitant]
     Active Substance: SODIUM CHLORIDE
     Dosage: 250 ML, UNK
     Route: 042
     Dates: start: 20180213
  8. CARFILZOMIB [Suspect]
     Active Substance: CARFILZOMIB
     Indication: PLASMA CELL MYELOMA
     Dosage: 95 MG, PER CHEMO REGIM
     Route: 042
     Dates: start: 20180213, end: 20180228
  9. MUPIROX [Concomitant]
     Dosage: UNK
     Dates: start: 20180205, end: 20180211
  10. LOKREN [Concomitant]
     Active Substance: BETAXOLOL HYDROCHLORIDE
     Dosage: 0.5 UNK, UNK
  11. HEPAREGEN [Concomitant]
     Dosage: 1 UNK, UNK
  12. RANIGAST [Concomitant]
     Dosage: 1 UNK, UNK
  13. DEXAMETHASONE. [Concomitant]
     Active Substance: DEXAMETHASONE
     Indication: PLASMA CELL MYELOMA
     Dosage: 20 MG, UNK
     Dates: start: 20180213, end: 20180228
  14. LYRICA [Concomitant]
     Active Substance: PREGABALIN
     Dosage: 3 UNK, UNK
  15. HEVIRAN [Concomitant]
     Active Substance: ACYCLOVIR
     Dosage: 2 UNK, UNK
     Route: 048
     Dates: start: 20171226
  16. NAPROXEN. [Concomitant]
     Active Substance: NAPROXEN
     Dosage: 1 UNK, UNK
     Dates: start: 20180201, end: 20180211
  17. HEPARIN [Concomitant]
     Active Substance: HEPARIN SODIUM
     Dosage: 1 UNK, UNK
     Dates: start: 20180201, end: 20180211

REACTIONS (1)
  - Pulmonary oedema [Not Recovered/Not Resolved]

NARRATIVE: CASE EVENT DATE: 20180228
